FAERS Safety Report 13385328 (Version 7)
Quarter: 2024Q4

REPORT INFORMATION
  Report Type: Report from Study
  Country: CA (occurrence: CA)
  Receive Date: 20170329
  Receipt Date: 20241030
  Transmission Date: 20250115
  Serious: Yes (Other)
  Sender: ROCHE
  Company Number: CA-002147023-PHHY2016CA053099

PATIENT
  Age: 69 Year
  Sex: Male

DRUGS (2)
  1. XOLAIR [Suspect]
     Active Substance: OMALIZUMAB
     Indication: Asthma
     Route: 058
     Dates: start: 20050617
  2. XOLAIR [Suspect]
     Active Substance: OMALIZUMAB
     Route: 058
     Dates: start: 20160310

REACTIONS (15)
  - Pulmonary fibrosis [Unknown]
  - Loss of consciousness [Unknown]
  - Spinal compression fracture [Unknown]
  - Forced vital capacity decreased [Unknown]
  - Peak expiratory flow rate decreased [Unknown]
  - Atelectasis [Unknown]
  - Bronchitis [Unknown]
  - Nasopharyngitis [Unknown]
  - Intervertebral disc degeneration [Unknown]
  - Facet joint syndrome [Unknown]
  - Arteriosclerosis [Unknown]
  - Degenerative bone disease [Unknown]
  - Forced expiratory volume increased [Not Recovered/Not Resolved]
  - Obstructive airways disorder [Unknown]
  - Weight decreased [Unknown]

NARRATIVE: CASE EVENT DATE: 20140109
